FAERS Safety Report 20092282 (Version 1)
Quarter: 2021Q4

REPORT INFORMATION
  Report Type: Spontaneous
  Country: US (occurrence: None)
  Receive Date: 20211119
  Receipt Date: 20211119
  Transmission Date: 20220303
  Serious: Yes (Other)
  Sender: FDA-Public Use
  Company Number: None

PATIENT
  Age: 68 Year
  Sex: Male
  Weight: 90.72 kg

DRUGS (23)
  1. ALBUTEROL\IPRATROPIUM [Suspect]
     Active Substance: ALBUTEROL\IPRATROPIUM
     Indication: Pneumonitis
     Dates: start: 202101
  2. BUDESONIDE [Suspect]
     Active Substance: BUDESONIDE
  3. TUSSIONEX PENNKINETIC [Concomitant]
     Active Substance: CHLORPHENIRAMINE\HYDROCODONE
  4. PROAIR HFA [Concomitant]
     Active Substance: ALBUTEROL SULFATE
  5. Atrovent Inhaler [Concomitant]
  6. ADVAIR HFA [Concomitant]
     Active Substance: FLUTICASONE PROPIONATE\SALMETEROL XINAFOATE
  7. FLUTICASONE [Concomitant]
     Active Substance: FLUTICASONE
  8. ATENOLOL [Concomitant]
     Active Substance: ATENOLOL
  9. Vicroprofen [Concomitant]
  10. BUSPIRONE [Concomitant]
     Active Substance: BUSPIRONE HYDROCHLORIDE
  11. FIORINAL [Concomitant]
     Active Substance: ASPIRIN\BUTALBITAL\CAFFEINE
  12. DIAZEPAM [Concomitant]
     Active Substance: DIAZEPAM
  13. LISINOPRIL [Concomitant]
     Active Substance: LISINOPRIL
  14. Pantoparzole [Concomitant]
  15. TAMSULOSIN [Concomitant]
     Active Substance: TAMSULOSIN
  16. TRAZODONE [Concomitant]
     Active Substance: TRAZODONE HYDROCHLORIDE
  17. Tadadafil [Concomitant]
  18. ATROPINE\DIPHENOXYLATE [Concomitant]
     Active Substance: ATROPINE\DIPHENOXYLATE
  19. HYDROCHLOROTHIAZIDE [Concomitant]
     Active Substance: HYDROCHLOROTHIAZIDE
  20. Systane ultra ophthalmic drops [Concomitant]
  21. Slo mag [Concomitant]
  22. VITAMIN D [Concomitant]
     Active Substance: VITAMIN D NOS
  23. Leg cramp ointment [Concomitant]

REACTIONS (2)
  - Product label confusion [None]
  - Product label issue [None]

NARRATIVE: CASE EVENT DATE: 20211106
